FAERS Safety Report 5644168-8 (Version None)
Quarter: 2008Q1

REPORT INFORMATION
  Report Type: 
  Country: None (occurrence: None)
  Receive Date: 20080229
  Receipt Date: 20080221
  Transmission Date: 20080703
  Serious: Yes (Other)
  Sender: FDA-Public Use
  Company Number: BR-BAYER-200811061LA

PATIENT
  Age: 56 Year
  Sex: Female

DRUGS (1)
  1. MIRENA [Suspect]
     Indication: UTERINE LEIOMYOMA
     Route: 015
     Dates: start: 20021008, end: 20040101

REACTIONS (3)
  - GENITAL HAEMORRHAGE [None]
  - PROCEDURAL PAIN [None]
  - UTERINE LEIOMYOMA [None]
